FAERS Safety Report 10257832 (Version 1)
Quarter: 2014Q2

REPORT INFORMATION
  Report Type: Spontaneous
  Country: FR (occurrence: None)
  Receive Date: 20140620
  Receipt Date: 20140620
  Transmission Date: 20141212
  Serious: Yes (Hospitalization)
  Sender: FDA-Public Use
  Company Number: FK201402422

PATIENT
  Age: 82 Year
  Sex: Male

DRUGS (17)
  1. CLINDAMYCIN PHOSPHATE [Suspect]
     Indication: DEVICE DISLOCATION
     Dosage: NOT OTHERWISE SPECIFIED
     Route: 042
     Dates: start: 20140207, end: 20140227
  2. CUBICIN (DAPTOMYCIN) [Suspect]
     Indication: DEVICE DISLOCATION
     Dates: start: 20140207, end: 20140227
  3. INVANZ (ERTAPENEM SODIUM) POWDER FOR INJECTION [Suspect]
     Indication: PROSTATITIS
     Dates: start: 20140212, end: 20140228
  4. CLOXACILLINE (CLOXACILLIN) [Concomitant]
  5. OXACILLINE (OXACILLIN) [Concomitant]
  6. MAGNESIUM (MAGNESIUM) [Concomitant]
  7. SMECTA (SMECTA) [Concomitant]
  8. OFLOXACINE (OFLOXACIN) [Concomitant]
  9. AUGMENTIN [Concomitant]
  10. KARDEGIC (ACETYLSALICYLATE LYSINE) [Concomitant]
  11. FUROSEMIDE (FUROSEMIDE) [Concomitant]
  12. NICARDIPINE (NICARDIPINE) [Concomitant]
  13. TAMSULOSINE (TAMSULOSIN HYDROCHLORIDE) [Concomitant]
  14. RACECADOTRIL (ACETORPHAN) [Concomitant]
  15. RAMIPRIL (RAMIPRIL) [Concomitant]
  16. OFLOCET (OFLOXACIN) [Concomitant]
  17. BRISTOPEN (OXACILLIN SODIUM) [Concomitant]

REACTIONS (1)
  - Toxic epidermal necrolysis [None]
